FAERS Safety Report 8596785-3 (Version None)
Quarter: 2012Q3

REPORT INFORMATION
  Report Type: 
  Country: None (occurrence: None)
  Receive Date: 20120815
  Receipt Date: 20120808
  Transmission Date: 20120928
  Serious: Yes (Death, Other)
  Sender: FDA-Public Use
  Company Number: IN-COVIDIEN/TYCO HEALTHCARE/MALLINCKRODT-T201203088

PATIENT
  Age: 36 Hour
  Sex: Male
  Weight: 1.5 kg

DRUGS (1)
  1. PENNSAID [Suspect]
     Dosage: UNK
     Route: 064

REACTIONS (4)
  - RESPIRATORY DISTRESS [None]
  - FOETAL EXPOSURE DURING PREGNANCY [None]
  - PERITONITIS [None]
  - RENAL FAILURE [None]
